FAERS Safety Report 23604530 (Version 1)
Quarter: 2024Q1

REPORT INFORMATION
  Report Type: Spontaneous
  Country: CN (occurrence: CN)
  Receive Date: 20240307
  Receipt Date: 20240307
  Transmission Date: 20240410
  Serious: Yes (Hospitalization, Other)
  Sender: FDA-Public Use
  Company Number: None

PATIENT
  Age: 6 Year
  Sex: Female
  Weight: 18 kg

DRUGS (11)
  1. CYCLOPHOSPHAMIDE [Suspect]
     Active Substance: CYCLOPHOSPHAMIDE
     Indication: Retroperitoneal neoplasm
     Dosage: 730 MG (1000 MG/M2), ONE TIME IN ONE DAY, D1-2, SIXTH COURSE
     Route: 041
     Dates: start: 20240214, end: 20240215
  2. CYCLOPHOSPHAMIDE [Suspect]
     Active Substance: CYCLOPHOSPHAMIDE
     Indication: Neuroblastoma
  3. MESNA [Suspect]
     Active Substance: MESNA
     Indication: Cystitis haemorrhagic
     Dosage: UNK, START DATE: FEB-2024, AFTER CHEMOTHERAPY
     Route: 065
  4. MESNA [Suspect]
     Active Substance: MESNA
     Indication: Prophylaxis
  5. PIRARUBICIN HYDROCHLORIDE [Suspect]
     Active Substance: PIRARUBICIN HYDROCHLORIDE
     Indication: Retroperitoneal neoplasm
     Dosage: 18.25 MG (25 MG/M2), ONE TIME IN ONE DAY, D1-3, SIXTH COURSE
     Route: 041
     Dates: start: 20240214, end: 20240216
  6. PIRARUBICIN HYDROCHLORIDE [Suspect]
     Active Substance: PIRARUBICIN HYDROCHLORIDE
     Indication: Neuroblastoma
  7. VINCRISTINE SULFATE [Suspect]
     Active Substance: VINCRISTINE SULFATE
     Indication: Retroperitoneal neoplasm
     Dosage: 0.489 MG (0.67 MG/M2), ONE TIME IN ONE DAY, D1-3, SIXTH COURSE
     Route: 041
     Dates: start: 20240214, end: 20240216
  8. VINCRISTINE SULFATE [Suspect]
     Active Substance: VINCRISTINE SULFATE
     Indication: Neuroblastoma
  9. DOLASETRON MESYLATE [Suspect]
     Active Substance: DOLASETRON MESYLATE
     Indication: Prophylaxis of nausea and vomiting
     Dosage: UNK, START DATE: FEB-2024, AFTER CHEMOTHERAPY
     Route: 065
  10. DEXRAZOXANE [Suspect]
     Active Substance: DEXRAZOXANE
     Indication: Cardiotoxicity
     Dosage: UNK, START DATE: FEB-2024, AFTER CHEMOTHERAPY
     Route: 065
  11. GLUTATHIONE [Suspect]
     Active Substance: GLUTATHIONE
     Indication: Prophylaxis
     Dosage: UNK, START DATE: FEB-2024, AFTER CHEMOTHERAPY
     Route: 065

REACTIONS (4)
  - Myelosuppression [Recovering/Resolving]
  - White blood cell count decreased [Recovering/Resolving]
  - Haemoglobin decreased [Unknown]
  - Platelet count decreased [Unknown]

NARRATIVE: CASE EVENT DATE: 20240217
